FAERS Safety Report 21565626 (Version 1)
Quarter: 2022Q4

REPORT INFORMATION
  Report Type: Report from Study
  Country: US (occurrence: US)
  Receive Date: 20221108
  Receipt Date: 20221108
  Transmission Date: 20230113
  Serious: No
  Sender: FDA-Public Use
  Company Number: US-ABBVIE-4155866

PATIENT
  Sex: Female

DRUGS (1)
  1. RINVOQ [Suspect]
     Active Substance: UPADACITINIB
     Indication: Rheumatoid arthritis
     Dosage: FORM STRENGTH: 15 MILLIGRAM, EXTENDED RELEASE?FIRST ADMIN DATE: JUN 2022
     Route: 048

REACTIONS (3)
  - Pain [Unknown]
  - Blister [Unknown]
  - Acne [Unknown]

NARRATIVE: CASE EVENT DATE: 20220101
